FAERS Safety Report 8163740-7 (Version None)
Quarter: 2012Q1

REPORT INFORMATION
  Report Type: 
  Country: None (occurrence: None)
  Receive Date: 20120224
  Receipt Date: 20120222
  Transmission Date: 20120608
  Serious: Yes (Hospitalization)
  Sender: FDA-Public Use
  Company Number: US-GILEAD-2012-0049299

PATIENT
  Sex: Male

DRUGS (2)
  1. RANOLAZINE [Suspect]
     Indication: VENTRICULAR ARRHYTHMIA
     Dosage: UNK
     Dates: start: 20111201, end: 20111212
  2. AMIODARONE HCL [Suspect]
     Indication: VENTRICULAR ARRHYTHMIA
     Dosage: UNK
     Dates: start: 20091201, end: 20111212

REACTIONS (3)
  - HAEMOLYTIC ANAEMIA [None]
  - CONFUSIONAL STATE [None]
  - BLOOD CREATININE INCREASED [None]
